FAERS Safety Report 10728986 (Version 2)
Quarter: 2015Q1

REPORT INFORMATION
  Report Type: Spontaneous
  Country: US (occurrence: US)
  Receive Date: 20150122
  Receipt Date: 20150216
  Transmission Date: 20150721
  Serious: No
  Sender: FDA-Public Use
  Company Number: US-PFIZER INC-2015020100

PATIENT
  Age: 41 Year
  Sex: Female
  Weight: 81.63 kg

DRUGS (2)
  1. ELELYSO [Suspect]
     Active Substance: TALIGLUCERASE ALFA
     Dosage: 5000 UNITS, EVERY 2 WEEKS
     Route: 042
  2. ELELYSO [Suspect]
     Active Substance: TALIGLUCERASE ALFA
     Indication: GAUCHER^S DISEASE
     Dosage: 5000 UNITS, EVERY 2 WEEKS
     Route: 042
     Dates: start: 201301

REACTIONS (8)
  - Chest discomfort [Unknown]
  - Pruritus [Unknown]
  - Flushing [Unknown]
  - Bone pain [Unknown]
  - Feeling hot [Unknown]
  - Headache [Unknown]
  - Heart rate increased [Unknown]
  - Pyrexia [Unknown]
